FAERS Safety Report 15807041 (Version 1)
Quarter: 2019Q1

REPORT INFORMATION
  Report Type: Spontaneous
  Country: US (occurrence: US)
  Receive Date: 20190104
  Receipt Date: 20190104
  Transmission Date: 20190417
  Serious: Yes (Hospitalization)
  Sender: FDA-Public Use
  Company Number: None

PATIENT

DRUGS (1)
  1. KETAMINE HCL KETAMINE [Suspect]
     Active Substance: KETAMINE HYDROCHLORIDE
     Dosage: INJECTABLE IV 50MG/5ML (10 MG/ML) PREFILLED SYRINGE
     Route: 042

REACTIONS (5)
  - Somnolence [None]
  - Product use complaint [None]
  - Incorrect dose administered [None]
  - Dose calculation error [None]
  - Product label confusion [None]
